FAERS Safety Report 14436639 (Version 1)
Quarter: 2018Q1

REPORT INFORMATION
  Report Type: Spontaneous
  Country: US (occurrence: US)
  Receive Date: 20180125
  Receipt Date: 20180125
  Transmission Date: 20180509
  Serious: No
  Sender: FDA-Public Use
  Company Number: US-LUPIN PHARMACEUTICALS INC.-2017-01728

PATIENT
  Age: 68 Year
  Sex: Female
  Weight: 57 kg

DRUGS (2)
  1. TRAMADOL HYDROCHLORIDE EXTENDED RELEASE [Suspect]
     Active Substance: TRAMADOL HYDROCHLORIDE
     Indication: NEURALGIA
     Dosage: 100 MG, QD
     Route: 048
     Dates: start: 201703
  2. TRAMADOL HYDROCHLORIDE EXTENDED RELEASE [Suspect]
     Active Substance: TRAMADOL HYDROCHLORIDE
     Dosage: 100 MG, QD
     Route: 048
     Dates: start: 201703

REACTIONS (3)
  - Somnolence [Not Recovered/Not Resolved]
  - Euphoric mood [Not Recovered/Not Resolved]
  - Sleep disorder [Not Recovered/Not Resolved]

NARRATIVE: CASE EVENT DATE: 201703
